FAERS Safety Report 4877243-6 (Version None)
Quarter: 2006Q1

REPORT INFORMATION
  Report Type: 
  Country: None (occurrence: None)
  Receive Date: 20060106
  Receipt Date: 20051227
  Transmission Date: 20060701
  Serious: Yes (Hospitalization, Other)
  Sender: FDA-Public Use
  Company Number: 217836

PATIENT
  Age: 63 Year
  Sex: Female
  Weight: 89 kg

DRUGS (11)
  1. MABTHERA (RITUXIMAB) CONC FOR SOLUTION FOR INFUSION [Suspect]
     Indication: NON-HODGKIN'S LYMPHOMA
     Dosage: 100 MG; 500 MG; 700 MG; 700 MG; 100 MG; 500 MG; 700 MG
     Dates: start: 20050929, end: 20050930
  2. MABTHERA (RITUXIMAB) CONC FOR SOLUTION FOR INFUSION [Suspect]
     Indication: NON-HODGKIN'S LYMPHOMA
     Dosage: 100 MG; 500 MG; 700 MG; 700 MG; 100 MG; 500 MG; 700 MG
     Dates: start: 20051026, end: 20051221
  3. MABTHERA (RITUXIMAB) CONC FOR SOLUTION FOR INFUSION [Suspect]
     Indication: NON-HODGKIN'S LYMPHOMA
     Dosage: 100 MG; 500 MG; 700 MG; 700 MG; 100 MG; 500 MG; 700 MG
     Dates: start: 20050623
  4. MABTHERA (RITUXIMAB) CONC FOR SOLUTION FOR INFUSION [Suspect]
     Indication: NON-HODGKIN'S LYMPHOMA
     Dosage: 100 MG; 500 MG; 700 MG; 700 MG; 100 MG; 500 MG; 700 MG
     Dates: start: 20050625
  5. MABTHERA (RITUXIMAB) CONC FOR SOLUTION FOR INFUSION [Suspect]
     Indication: NON-HODGKIN'S LYMPHOMA
     Dosage: 100 MG; 500 MG; 700 MG; 700 MG; 100 MG; 500 MG; 700 MG
     Dates: start: 20050715
  6. MABTHERA (RITUXIMAB) CONC FOR SOLUTION FOR INFUSION [Suspect]
     Indication: NON-HODGKIN'S LYMPHOMA
     Dosage: 100 MG; 500 MG; 700 MG; 700 MG; 100 MG; 500 MG; 700 MG
     Dates: start: 20050808
  7. MABTHERA (RITUXIMAB) CONC FOR SOLUTION FOR INFUSION [Suspect]
     Indication: NON-HODGKIN'S LYMPHOMA
     Dosage: 100 MG; 500 MG; 700 MG; 700 MG; 100 MG; 500 MG; 700 MG
     Dates: start: 20051004
  8. CYCLOPHOSPHAMIDE [Concomitant]
  9. DOXORUBICIN HCL [Concomitant]
  10. VINCRISTINE [Concomitant]
  11. PREDNISONE [Concomitant]

REACTIONS (1)
  - PULMONARY OEDEMA [None]
